FAERS Safety Report 23660860 (Version 1)
Quarter: 2024Q1

REPORT INFORMATION
  Report Type: Other
  Country: CA (occurrence: CA)
  Receive Date: 20240322
  Receipt Date: 20240322
  Transmission Date: 20240410
  Serious: Yes (Other)
  Sender: FDA-Public Use
  Company Number: CA-APOTEX-2024AP003721

PATIENT
  Age: 53 Year
  Sex: Female
  Weight: 69 kg

DRUGS (2)
  1. LETROZOLE [Suspect]
     Active Substance: LETROZOLE
     Indication: Product used for unknown indication
     Dosage: 2.5 MILLIGRAM
     Route: 065
  2. KISQALI [Suspect]
     Active Substance: RIBOCICLIB
     Indication: Breast cancer metastatic
     Dosage: 600 MILLIGRAM
     Route: 065

REACTIONS (4)
  - Liver function test increased [Unknown]
  - Toxicity to various agents [Unknown]
  - Aspartate aminotransferase increased [Unknown]
  - Hepatic enzyme increased [Unknown]
